FAERS Safety Report 9081910 (Version 2)
Quarter: 2013Q1

REPORT INFORMATION
  Report Type: Spontaneous
  Country: GB (occurrence: GB)
  Receive Date: 20130131
  Receipt Date: 20130221
  Transmission Date: 20140127
  Serious: Yes (Other)
  Sender: FDA-Public Use
  Company Number: GB-009507513-1301GBR012944

PATIENT
  Age: 66 Year
  Sex: Male
  Weight: 75 kg

DRUGS (4)
  1. SIMVASTATIN [Suspect]
     Indication: CHRONIC OBSTRUCTIVE PULMONARY DISEASE
     Dosage: 20 MG, QD
     Route: 048
     Dates: start: 20130109, end: 20130110
  2. SIMVASTATIN [Suspect]
     Indication: CARDIOVASCULAR DISORDER
  3. SALMETEROL [Concomitant]
     Dosage: 3 DF, ONE DAY
     Route: 055
  4. ALBUTEROL [Concomitant]

REACTIONS (3)
  - Chest pain [Recovered/Resolved]
  - Dyspnoea [Recovered/Resolved]
  - Muscle spasms [Recovered/Resolved]
